FAERS Safety Report 5616206-X (Version None)
Quarter: 2008Q1

REPORT INFORMATION
  Report Type: 
  Country: None (occurrence: None)
  Receive Date: 20080206
  Receipt Date: 20080129
  Transmission Date: 20080703
  Serious: Yes (Other)
  Sender: FDA-Public Use
  Company Number: US-MERCK-0801USA05864

PATIENT
  Age: 81 Year
  Sex: Female

DRUGS (3)
  1. FOSAMAX [Suspect]
     Indication: OSTEOPENIA
     Route: 048
     Dates: start: 20000101, end: 20070119
  2. DIOVAN [Concomitant]
     Route: 065
  3. VESICARE [Concomitant]
     Route: 065

REACTIONS (6)
  - GINGIVAL PAIN [None]
  - MUSCLE SPASMS [None]
  - MYALGIA [None]
  - PAIN IN JAW [None]
  - SWELLING FACE [None]
  - TONGUE PARALYSIS [None]
